FAERS Safety Report 25219915 (Version 1)
Quarter: 2025Q2

REPORT INFORMATION
  Report Type: Spontaneous
  Country: ES (occurrence: ES)
  Receive Date: 20250421
  Receipt Date: 20250421
  Transmission Date: 20250717
  Serious: Yes (Other)
  Sender: BAUSCH AND LOMB
  Company Number: ES-AMGEN-ESPSP2025068676

PATIENT
  Age: 70 Year
  Sex: Male

DRUGS (5)
  1. DEXAMETHASONE [Suspect]
     Active Substance: DEXAMETHASONE
     Indication: Plasma cell myeloma
     Route: 065
     Dates: start: 202502
  2. KYPROLIS [Suspect]
     Active Substance: CARFILZOMIB
     Indication: Plasma cell myeloma
     Route: 065
     Dates: start: 202502, end: 202503
  3. KYPROLIS [Suspect]
     Active Substance: CARFILZOMIB
     Dosage: 27 MILLIGRAM, QWK (SINGLE WEEKLY DOSE)
     Route: 065
     Dates: start: 2025, end: 2025
  4. KYPROLIS [Suspect]
     Active Substance: CARFILZOMIB
     Dosage: UNK UNK, QWK (NOT ENOUGH TO RECEIVE THE FULL DOSE OF K WEEKLY)
     Route: 065
     Dates: start: 2025
  5. ISATUXIMAB [Suspect]
     Active Substance: ISATUXIMAB
     Indication: Plasma cell myeloma
     Route: 065
     Dates: start: 202502

REACTIONS (2)
  - Thrombocytopenia [Recovering/Resolving]
  - Off label use [Unknown]

NARRATIVE: CASE EVENT DATE: 20250201
